FAERS Safety Report 10404699 (Version 2)
Quarter: 2014Q3

REPORT INFORMATION
  Report Type: Spontaneous
  Country: US (occurrence: US)
  Receive Date: 20140824
  Receipt Date: 20140824
  Transmission Date: 20150326
  Serious: Yes (Hospitalization, Other)
  Sender: FDA-Public Use
  Company Number: US-009507513-2010SP009716

PATIENT
  Sex: Female
  Weight: 70.76 kg

DRUGS (7)
  1. DEXAMETHASONE (+) TOBRAMYCIN [Concomitant]
     Active Substance: DEXAMETHASONE\TOBRAMYCIN
     Route: 047
     Dates: start: 20071115, end: 20071216
  2. ACETAMINOPHEN (+) HYDROCODONE BITARTRATE [Concomitant]
     Active Substance: ACETAMINOPHEN\HYDROCODONE
     Dosage: 500 MG, UNK
     Dates: start: 20080131
  3. MEDROXYPROGESTERONE ACETATE. [Suspect]
     Active Substance: MEDROXYPROGESTERONE ACETATE
     Indication: CONTRACEPTION
     Dates: start: 20080208
  4. NUVARING [Suspect]
     Active Substance: ETHINYL ESTRADIOL\ETONOGESTREL
     Indication: CONTRACEPTION
     Route: 067
     Dates: start: 20071203, end: 20080208
  5. CEPHALEXIN. [Concomitant]
     Active Substance: CEPHALEXIN
     Dosage: 500 MG, UNK
     Dates: start: 20080131
  6. SYNTHROID [Concomitant]
     Active Substance: LEVOTHYROXINE SODIUM
     Indication: HYPOTHYROIDISM
     Dosage: 125 ?G, UNK
     Dates: start: 20060711
  7. NUVARING [Suspect]
     Active Substance: ETHINYL ESTRADIOL\ETONOGESTREL
     Indication: VAGINAL HAEMORRHAGE

REACTIONS (5)
  - Autoimmune thyroiditis [Unknown]
  - Mental disorder [Unknown]
  - Pulmonary embolism [Recovered/Resolved]
  - Benign breast neoplasm [Recovered/Resolved]
  - Vaginal haemorrhage [Unknown]

NARRATIVE: CASE EVENT DATE: 200801
